FAERS Safety Report 16583386 (Version 1)
Quarter: 2019Q3

REPORT INFORMATION
  Report Type: Spontaneous
  Country: US (occurrence: US)
  Receive Date: 20190716
  Receipt Date: 20190716
  Transmission Date: 20191004
  Serious: Yes (Disabling)
  Sender: FDA-Public Use
  Company Number: None

PATIENT
  Sex: Female
  Weight: 76.5 kg

DRUGS (11)
  1. RIZATRIPTAN. [Concomitant]
     Active Substance: RIZATRIPTAN
  2. AMBIEN [Concomitant]
     Active Substance: ZOLPIDEM TARTRATE
  3. VITAMIN D3 [Concomitant]
     Active Substance: CHOLECALCIFEROL
  4. AIMOVIG [Suspect]
     Active Substance: ERENUMAB-AOOE
     Indication: MIGRAINE
     Dosage: ?          QUANTITY:2 INJECTION(S);OTHER FREQUENCY:MONTHLY;?
     Route: 058
     Dates: start: 20181010, end: 20190615
  5. SODIUM CHOLORIDE [Concomitant]
  6. ZOLOFT [Concomitant]
     Active Substance: SERTRALINE HYDROCHLORIDE
  7. TYLENOL [Concomitant]
     Active Substance: ACETAMINOPHEN
  8. TYLENOL PM [Concomitant]
     Active Substance: ACETAMINOPHEN\DIPHENHYDRAMINE
  9. CLONOZEPAM [Concomitant]
  10. YAZ BIRTH CONTROL, [Concomitant]
  11. IBUPROFEN. [Concomitant]
     Active Substance: IBUPROFEN

REACTIONS (18)
  - Arthralgia [None]
  - Dyschromatopsia [None]
  - Insomnia [None]
  - Mental impairment [None]
  - Aphasia [None]
  - Dysstasia [None]
  - Migraine [None]
  - Presyncope [None]
  - Dizziness [None]
  - Gait disturbance [None]
  - Tinnitus [None]
  - Hyperacusis [None]
  - Syncope [None]
  - Fatigue [None]
  - Impaired healing [None]
  - Vision blurred [None]
  - Therapeutic product effect decreased [None]
  - Symptom recurrence [None]
